FAERS Safety Report 4946313-6 (Version None)
Quarter: 2006Q1

REPORT INFORMATION
  Report Type: 
  Country: None (occurrence: None)
  Receive Date: 20060316
  Receipt Date: 20060316
  Transmission Date: 20060701
  Serious: Yes (Other)
  Sender: FDA-Public Use
  Company Number: None

PATIENT
  Age: 45 Year
  Sex: Male
  Weight: 95.2554 kg

DRUGS (3)
  1. AMBIEN [Suspect]
     Indication: ATTENTION DEFICIT/HYPERACTIVITY DISORDER
     Dosage: 1 TO 1 1/2 TABLETS  NIGHTLY  PO
     Route: 048
  2. AMBIEN [Suspect]
     Indication: DEPRESSION
     Dosage: 1 TO 1 1/2 TABLETS  NIGHTLY  PO
     Route: 048
  3. AMBIEN [Suspect]
     Indication: INSOMNIA
     Dosage: 1 TO 1 1/2 TABLETS  NIGHTLY  PO
     Route: 048

REACTIONS (7)
  - ABNORMAL BEHAVIOUR [None]
  - AMNESIA [None]
  - DRUG ABUSER [None]
  - DRUG PRESCRIBING ERROR [None]
  - INAPPROPRIATE SCHEDULE OF DRUG ADMINISTRATION [None]
  - ROAD TRAFFIC ACCIDENT [None]
  - SLEEP WALKING [None]
